FAERS Safety Report 7411526-0 (Version None)
Quarter: 2011Q2

REPORT INFORMATION
  Report Type: 
  Country: None (occurrence: None)
  Receive Date: 20110413
  Receipt Date: 20100813
  Transmission Date: 20111010
  Serious: Yes (Other)
  Sender: FDA-Public Use
  Company Number: US-BRISTOL-MYERS SQUIBB COMPANY-15239601

PATIENT
  Age: 49 Year
  Sex: Male

DRUGS (1)
  1. ERBITUX [Suspect]
     Dosage: 40ML
     Route: 042
     Dates: start: 20100810, end: 20100810

REACTIONS (2)
  - RESTLESSNESS [None]
  - LOSS OF CONSCIOUSNESS [None]
